FAERS Safety Report 4882546-5 (Version None)
Quarter: 2005Q4

REPORT INFORMATION
  Report Type: 
  Country: None (occurrence: None)
  Receive Date: 20051201
  Receipt Date: 20050929
  Transmission Date: 20060501
  Serious: No
  Sender: FDA-Public Use
  Company Number: 2005PV002728

PATIENT
  Age: 35 Year
  Sex: Female

DRUGS (2)
  1. BYETTA [Suspect]
     Indication: DIABETES MELLITUS NON-INSULIN-DEPENDENT
     Dosage: 5 MCG; UNKNOWN; SC
     Route: 058
     Dates: start: 20050901, end: 20050901
  2. GLUCOPHAGE [Concomitant]

REACTIONS (2)
  - PRURITUS [None]
  - URTICARIA [None]
